FAERS Safety Report 9757224 (Version 1)
Quarter: 2013Q4

REPORT INFORMATION
  Report Type: Spontaneous
  Country: CA (occurrence: CA)
  Receive Date: 20131213
  Receipt Date: 20131213
  Transmission Date: 20140711
  Serious: Yes (Death, Life-Threatening, Hospitalization, Other)
  Sender: FDA-Public Use
  Company Number: CA-ASTRAZENECA-2013SE90429

PATIENT
  Age: 84 Year
  Sex: Female

DRUGS (4)
  1. SEROQUEL [Suspect]
     Route: 048
  2. SEROQUEL [Suspect]
     Dosage: DOUBLED DOSE
     Route: 048
  3. LIPITOR [Suspect]
     Route: 048
  4. LYRICA [Suspect]
     Route: 048

REACTIONS (11)
  - Renal failure [Fatal]
  - Rhabdomyolysis [Fatal]
  - Haemoglobinuria [Fatal]
  - Cardiac arrest [Unknown]
  - Convulsion [Unknown]
  - Arrhythmia [Unknown]
  - Haemoglobin decreased [Unknown]
  - Pyrexia [Unknown]
  - Faecal incontinence [Unknown]
  - Dysstasia [Unknown]
  - Asthenia [Unknown]
